FAERS Safety Report 9449818 (Version 1)
Quarter: 2013Q3

REPORT INFORMATION
  Report Type: Report from Study
  Country: US (occurrence: US)
  Receive Date: 20130809
  Receipt Date: 20130809
  Transmission Date: 20140515
  Serious: Yes (Hospitalization, Other)
  Sender: FDA-Public Use
  Company Number: US-NAPPMUNDI-USA-2013-0105168

PATIENT
  Age: 78 Year
  Sex: Male

DRUGS (17)
  1. HYDROMORPHONE HCL (SIMILAR TO 19-892) [Suspect]
     Indication: PRODUCT USED FOR UNKNOWN INDICATION
     Dosage: 2 MG, UNK
     Route: 048
  2. SUNITINIB MALATE [Suspect]
     Indication: PRODUCT USED FOR UNKNOWN INDICATION
     Dosage: 37.5 MG, DAILY
     Route: 048
     Dates: start: 20121130, end: 20121210
  3. DASATINIB [Suspect]
     Indication: PRODUCT USED FOR UNKNOWN INDICATION
     Dosage: 100 MG, DAILY
     Route: 048
     Dates: start: 20120920, end: 20121031
  4. ABIRATERONE ACETATE [Suspect]
     Indication: PRODUCT USED FOR UNKNOWN INDICATION
     Dosage: 1000 MG, DAILY
     Route: 048
     Dates: start: 20120531, end: 20121210
  5. ADVIL /00109201/ [Suspect]
     Indication: PRODUCT USED FOR UNKNOWN INDICATION
     Dosage: UNK
  6. HYDROCHLOROTHIAZIDE [Suspect]
     Indication: PRODUCT USED FOR UNKNOWN INDICATION
     Dosage: 25 MG, DAILY
     Route: 048
  7. POTASSIUM CHLORIDE [Suspect]
     Indication: PRODUCT USED FOR UNKNOWN INDICATION
     Dosage: 20 MEQ, UNK
  8. ADVAIR [Suspect]
     Indication: PRODUCT USED FOR UNKNOWN INDICATION
     Dosage: 100/50 MG, 2X/DAY
     Route: 055
  9. COREG [Suspect]
     Indication: PRODUCT USED FOR UNKNOWN INDICATION
     Dosage: 6.25 MG, UNK
     Route: 048
  10. NORCO [Suspect]
     Indication: PRODUCT USED FOR UNKNOWN INDICATION
     Dosage: 5/325 MG EVERY 6 HOURS
     Route: 048
  11. ZOMETA [Suspect]
     Indication: PRODUCT USED FOR UNKNOWN INDICATION
     Dosage: 4 MG, ANNUALLY
     Route: 042
  12. LUPRON [Suspect]
     Indication: PRODUCT USED FOR UNKNOWN INDICATION
     Dosage: 22.5 MG EVERY 3 MONTHS
  13. CARAFATE [Suspect]
     Indication: PRODUCT USED FOR UNKNOWN INDICATION
     Dosage: 10 ML, UNK
  14. XOPENEX [Suspect]
     Indication: PRODUCT USED FOR UNKNOWN INDICATION
     Dosage: 2 DOSAGE UNIT DAILY
  15. AUGMENTIN /00756801/ [Suspect]
     Indication: PRODUCT USED FOR UNKNOWN INDICATION
     Dosage: 875 MG, BID
     Route: 048
  16. ASPIRIN [Suspect]
     Indication: PRODUCT USED FOR UNKNOWN INDICATION
     Dosage: 325 MG, DAILY
  17. COMBIVENT [Suspect]
     Indication: PRODUCT USED FOR UNKNOWN INDICATION
     Dosage: 14.7 G, UNK

REACTIONS (5)
  - Stomatitis [Recovered/Resolved]
  - Neutropenia [Recovered/Resolved]
  - Fatigue [Recovered/Resolved]
  - Pyrexia [Unknown]
  - Urinary tract infection [Unknown]
